FAERS Safety Report 6407923-2 (Version None)
Quarter: 2009Q4

REPORT INFORMATION
  Report Type: 
  Country: None (occurrence: None)
  Receive Date: 20091016
  Receipt Date: 20090821
  Transmission Date: 20100525
  Serious: Yes (Other)
  Sender: FDA-Public Use
  Company Number: CHNY2009BR03297

PATIENT
  Sex: Female

DRUGS (1)
  1. NUPERCAINAL (NCH) (CINCHOCAINE) OINTMENT [Suspect]
     Indication: HAEMORRHOIDS
     Dates: start: 20080101

REACTIONS (1)
  - SHOULDER OPERATION [None]
